FAERS Safety Report 7071335-1 (Version None)
Quarter: 2010Q4

REPORT INFORMATION
  Report Type: 
  Country: None (occurrence: None)
  Receive Date: 20101029
  Receipt Date: 20101019
  Transmission Date: 20110411
  Serious: Yes (Hospitalization)
  Sender: FDA-Public Use
  Company Number: DE-JNJFOC-20100903642

PATIENT
  Sex: Male
  Weight: 32 kg

DRUGS (4)
  1. REMICADE [Suspect]
     Indication: INFLAMMATORY BOWEL DISEASE
     Route: 042
  2. REMICADE [Suspect]
     Route: 042
  3. 5 AMINOSALICYLIC ACID [Concomitant]
  4. AMPHOTERICIN B [Concomitant]

REACTIONS (1)
  - PYREXIA [None]
